FAERS Safety Report 9106214 (Version 6)
Quarter: 2017Q4

REPORT INFORMATION
  Report Type: Spontaneous
  Country: US (occurrence: US)
  Receive Date: 20130221
  Receipt Date: 20171212
  Transmission Date: 20180321
  Serious: Yes (Hospitalization, Disabling, Other)
  Sender: FDA-Public Use
  Company Number: US-009507513-1302USA009104

PATIENT
  Sex: Female
  Weight: 88.89 kg

DRUGS (7)
  1. FOSAMAX [Suspect]
     Active Substance: ALENDRONATE SODIUM
     Dosage: 70 MG, QW
     Route: 048
     Dates: start: 20091030
  2. FOSAMAX [Suspect]
     Active Substance: ALENDRONATE SODIUM
     Indication: OSTEOPOROSIS
     Dosage: 70 MG, QW
     Route: 048
     Dates: start: 20020706, end: 20041113
  3. ALENDRONATE SODIUM. [Suspect]
     Active Substance: ALENDRONATE SODIUM
     Indication: OSTEOPOROSIS
     Dosage: 70 MG, QW
     Route: 048
     Dates: start: 20080324
  4. ALENDRONATE SODIUM. [Suspect]
     Active Substance: ALENDRONATE SODIUM
     Dosage: 70 MG, QW
     Route: 048
     Dates: start: 20090716, end: 20140728
  5. ALENDRONATE SODIUM. [Suspect]
     Active Substance: ALENDRONATE SODIUM
     Dosage: 70 MG, QW
     Route: 048
     Dates: start: 20151107
  6. ALENDRONATE SODIUM. [Suspect]
     Active Substance: ALENDRONATE SODIUM
     Indication: OSTEOPOROSIS
     Dosage: 70 MG, QW
     Route: 048
     Dates: start: 20080324, end: 20090714
  7. FOSAMAX PLUS D [Suspect]
     Active Substance: ALENDRONATE SODIUM\CHOLECALCIFEROL
     Indication: OSTEOPOROSIS
     Dosage: 70-2800 MG, QW
     Route: 048
     Dates: start: 20071026, end: 20080222

REACTIONS (34)
  - Back injury [Unknown]
  - Oedema [Unknown]
  - Dyspnoea [Unknown]
  - Rhinitis allergic [Unknown]
  - Neck pain [Unknown]
  - Hypotension [Unknown]
  - Arthropathy [Unknown]
  - Coronary artery disease [Unknown]
  - Goitre [Unknown]
  - Back pain [Unknown]
  - Foot fracture [Unknown]
  - Femur fracture [Recovering/Resolving]
  - Abnormal weight gain [Unknown]
  - Back disorder [Unknown]
  - Femur fracture [Unknown]
  - Stress fracture [Unknown]
  - Hyperlipidaemia [Unknown]
  - Spinal compression fracture [Unknown]
  - Ulna fracture [Unknown]
  - Kyphoscoliosis [Unknown]
  - Breast cancer [Unknown]
  - Fall [Unknown]
  - Osteoporosis [Unknown]
  - Lymphangiopathy [Unknown]
  - Spinal fusion surgery [Unknown]
  - Tooth disorder [Unknown]
  - Hypertension [Unknown]
  - Pain [Unknown]
  - Uterine carcinoma in situ [Unknown]
  - Radius fracture [Unknown]
  - Nausea [Unknown]
  - Depression [Unknown]
  - Pain in extremity [Unknown]
  - Muscular weakness [Unknown]

NARRATIVE: CASE EVENT DATE: 2006
